FAERS Safety Report 23416429 (Version 1)
Quarter: 2024Q1

REPORT INFORMATION
  Report Type: Spontaneous
  Country: US (occurrence: US)
  Receive Date: 20240118
  Receipt Date: 20240118
  Transmission Date: 20240410
  Serious: No
  Sender: FDA-Public Use
  Company Number: US-AMGEN-USASP2024010419

PATIENT
  Age: 49 Year
  Sex: Female

DRUGS (2)
  1. TAVNEOS [Suspect]
     Active Substance: AVACOPAN
     Indication: Arteritis
     Dosage: 30 MILLIGRAM, BID (TAKE 3 CAPSULES BY MOUTH TWICE DAILY WITH FOOD FOR ARTERITIS)
     Route: 048
  2. TAVNEOS [Suspect]
     Active Substance: AVACOPAN
     Indication: Off label use

REACTIONS (4)
  - Alopecia [Unknown]
  - Weight decreased [Unknown]
  - Fatigue [Unknown]
  - Off label use [Unknown]
